FAERS Safety Report 5663608-1 (Version None)
Quarter: 2008Q1

REPORT INFORMATION
  Report Type: 
  Country: None (occurrence: None)
  Receive Date: 20080307
  Receipt Date: 20080228
  Transmission Date: 20080703
  Serious: Yes (Death, Hospitalization, Other)
  Sender: FDA-Public Use
  Company Number: 2008SP004216

PATIENT
  Age: 74 Year
  Sex: Male
  Weight: 89.9 kg

DRUGS (17)
  1. POTASSIUM CHLORIDE [Suspect]
     Indication: DRUG USE FOR UNKNOWN INDICATION
     Dosage: 20 MEQ; 80 MEQ;
     Dates: end: 20060612
  2. POTASSIUM CHLORIDE [Suspect]
     Indication: DRUG USE FOR UNKNOWN INDICATION
     Dosage: 20 MEQ; 80 MEQ;
     Dates: start: 20060606
  3. ARANESP [Suspect]
     Indication: ANAEMIA OF MALIGNANT DISEASE
     Dosage: 500 MCG; Q3W; SC
     Route: 058
     Dates: start: 20060412, end: 20060612
  4. METHOTREXATE [Suspect]
     Indication: DRUG USE FOR UNKNOWN INDICATION
     Dosage: 8000 MG; IV
     Route: 042
     Dates: start: 20060508, end: 20060509
  5. MESNA [Suspect]
     Indication: DRUG USE FOR UNKNOWN INDICATION
     Dosage: 200 MG; IV
     Route: 042
     Dates: start: 20060606, end: 20060612
  6. FUROSEMIDE (CON.) /00032602/ [Concomitant]
  7. PLATELETS, HUMAN BLOOD (CON.) [Concomitant]
  8. BLOOD CELLS, PACKED HUMAN (CON.) [Concomitant]
  9. FLUOXETINE (CON.) /00724402/ [Concomitant]
  10. OMEPRAZOLE (CON.) /00771202 [Concomitant]
  11. VALACICLOVIR (CON.) /01269702/ [Concomitant]
  12. FLUCONAZOLE (CON.) [Concomitant]
  13. CIPROFLOXACIN (CON.) /00697202/ [Concomitant]
  14. ATORVASTATIN (CON.) /01326102/ [Concomitant]
  15. PAROXETINE (CON.) /00830802/ [Concomitant]
  16. NEUPOGEN (CON.) [Concomitant]
  17. RITUXIMAB (CON.) [Concomitant]

REACTIONS (13)
  - ARRHYTHMIA [None]
  - BLOOD PRESSURE INCREASED [None]
  - CARDIAC ARREST [None]
  - CARDIAC FAILURE ACUTE [None]
  - CARDIAC HYPERTROPHY [None]
  - EPISTAXIS [None]
  - FLUID OVERLOAD [None]
  - HAEMATURIA [None]
  - HAEMOGLOBIN DECREASED [None]
  - PULMONARY CONGESTION [None]
  - SPLEEN CONGESTION [None]
  - UNRESPONSIVE TO STIMULI [None]
  - WEIGHT INCREASED [None]
